FAERS Safety Report 6440485-2 (Version None)
Quarter: 2009Q4

REPORT INFORMATION
  Report Type: 
  Country: None (occurrence: None)
  Receive Date: 20091113
  Receipt Date: 20091106
  Transmission Date: 20100525
  Serious: Yes (Disabling)
  Sender: FDA-Public Use
  Company Number: CA-ASTRAZENECA-2009SE25161

PATIENT
  Age: 45 Year
  Sex: Male

DRUGS (7)
  1. ATACAND [Suspect]
     Indication: BLOOD PRESSURE
     Route: 048
     Dates: start: 20090617
  2. SERTRALINE HCL [Concomitant]
     Route: 065
  3. AMITRIPTYLINE HCL [Concomitant]
     Route: 065
  4. NITRAZEPAM [Concomitant]
     Route: 065
  5. SYNTHROID [Concomitant]
     Route: 065
  6. ASPIRIN [Concomitant]
     Route: 065
  7. TESTIN [Concomitant]
     Route: 065

REACTIONS (3)
  - ARTHRITIS [None]
  - MYALGIA [None]
  - PARAESTHESIA [None]
